FAERS Safety Report 19774182 (Version 1)
Quarter: 2021Q3

REPORT INFORMATION
  Report Type: Spontaneous
  Country: US (occurrence: US)
  Receive Date: 20210831
  Receipt Date: 20210831
  Transmission Date: 20211014
  Serious: No
  Sender: FDA-Public Use
  Company Number: US-JNJFOC-20210846307

PATIENT
  Sex: Female

DRUGS (1)
  1. WOMENS ROGAINE UNSCENTED [Suspect]
     Active Substance: MINOXIDIL
     Indication: ALOPECIA
     Dosage: AS DIRECTED ONCE A DAY
     Route: 065
     Dates: start: 20210813

REACTIONS (5)
  - Hypotension [Recovered/Resolved]
  - Feeling abnormal [Recovered/Resolved]
  - Product use in unapproved indication [Unknown]
  - Fatigue [Recovered/Resolved]
  - Headache [Recovered/Resolved]

NARRATIVE: CASE EVENT DATE: 20210813
